FAERS Safety Report 4390927-1 (Version None)
Quarter: 2004Q2

REPORT INFORMATION
  Report Type: 
  Country: None (occurrence: None)
  Receive Date: 20040630
  Receipt Date: 20040618
  Transmission Date: 20050107
  Serious: Yes (Other)
  Sender: FDA-Public Use
  Company Number: ZONI001439

PATIENT
  Age: 40 Year
  Sex: Male

DRUGS (3)
  1. ZONEGRAN [Suspect]
     Indication: EPILEPSY
     Dosage: ORAL
     Route: 048
     Dates: start: 20031201
  2. LAMICTAL [Concomitant]
  3. DILANTIN [Concomitant]

REACTIONS (3)
  - HAEMOPTYSIS [None]
  - PNEUMONIA ASPIRATION [None]
  - SENSATION OF FOREIGN BODY [None]
